FAERS Safety Report 5193153-1 (Version None)
Quarter: 2006Q4

REPORT INFORMATION
  Report Type: 
  Country: None (occurrence: None)
  Receive Date: 20061228
  Receipt Date: 20060605
  Transmission Date: 20070319
  Serious: No
  Sender: FDA-Public Use
  Company Number: US-GLAXOSMITHKLINE-A0607905A

PATIENT
  Age: 34 Year
  Sex: Male

DRUGS (2)
  1. AVODART [Suspect]
     Indication: BENIGN PROSTATIC HYPERPLASIA
     Dosage: .5MG PER DAY
     Route: 048
     Dates: end: 20060605
  2. FLONASE [Concomitant]

REACTIONS (3)
  - LOCAL SWELLING [None]
  - PRURITUS [None]
  - SKIN BURNING SENSATION [None]
